FAERS Safety Report 17446628 (Version 2)
Quarter: 2021Q2

REPORT INFORMATION
  Report Type: Spontaneous
  Country: US (occurrence: US)
  Receive Date: 20200221
  Receipt Date: 20210402
  Transmission Date: 20210716
  Serious: Yes (Hospitalization, Other)
  Sender: FDA-Public Use
  Company Number: US-TEVA-2020-US-1188320

PATIENT
  Sex: Male
  Weight: 81.64 kg

DRUGS (13)
  1. VALSARTAN TEVA [Suspect]
     Active Substance: VALSARTAN
     Indication: CARDIAC DISORDER
     Route: 065
     Dates: start: 20151024, end: 20160210
  2. VITAMIN B12 [Concomitant]
     Active Substance: CYANOCOBALAMIN
     Route: 065
  3. VALSARTAN TEVA [Suspect]
     Active Substance: VALSARTAN
     Route: 065
     Dates: start: 20160711, end: 20171210
  4. IRBESARTAN. [Concomitant]
     Active Substance: IRBESARTAN
     Indication: CARDIAC DISORDER
     Dosage: ONCE/DAILY
     Route: 065
     Dates: start: 2018
  5. ROSUVASTATIN CALCIUM. [Concomitant]
     Active Substance: ROSUVASTATIN CALCIUM
     Indication: BLOOD CHOLESTEROL ABNORMAL
     Dosage: ONCE/DAILY
     Route: 065
     Dates: start: 2013
  6. ASPIRIN 81 [Concomitant]
     Active Substance: ASPIRIN
     Indication: CARDIAC DISORDER
     Dosage: ONCE/DAILY
     Route: 065
     Dates: start: 2016, end: 2020
  7. VITAMIN B12 [Concomitant]
     Active Substance: CYANOCOBALAMIN
     Indication: CARDIAC DISORDER
     Dosage: ONCE/DAILY
     Route: 065
     Dates: start: 2016, end: 2020
  8. NITROSTAT [Concomitant]
     Active Substance: NITROGLYCERIN
     Route: 060
  9. VALSARTAN SOLCO [Suspect]
     Active Substance: VALSARTAN
     Indication: CARDIAC DISORDER
     Route: 065
     Dates: start: 20160429, end: 20180701
  10. METOPROLOL SUCCINATE. [Concomitant]
     Active Substance: METOPROLOL SUCCINATE
     Indication: CARDIAC DISORDER
     Dosage: ONCE/DAILY
     Route: 065
     Dates: start: 2016
  11. METOPROLOL SUCCINATE. [Concomitant]
     Active Substance: METOPROLOL SUCCINATE
  12. CLOPIDOGREL [Concomitant]
     Active Substance: CLOPIDOGREL BISULFATE
     Indication: CARDIAC DISORDER
     Dosage: ONCE/DAILY
     Route: 065
     Dates: start: 2020
  13. BRILINTA [Concomitant]
     Active Substance: TICAGRELOR
     Indication: CARDIAC DISORDER
     Dosage: TWICE/DAILY
     Route: 065
     Dates: start: 2016, end: 2020

REACTIONS (1)
  - Prostate cancer [Not Recovered/Not Resolved]
